FAERS Safety Report 8168506-X (Version None)
Quarter: 2012Q1

REPORT INFORMATION
  Report Type: 
  Country: None (occurrence: None)
  Receive Date: 20120227
  Receipt Date: 20120227
  Transmission Date: 20120608
  Serious: Yes (Other)
  Sender: FDA-Public Use
  Company Number: None

PATIENT
  Sex: Male

DRUGS (2)
  1. FLUOANXOL [Concomitant]
     Dosage: ONCE A MONTH
  2. HALOPERIDOL [Suspect]
     Dosage: 5MG

REACTIONS (3)
  - DYSPEPSIA [None]
  - FATIGUE [None]
  - MUSCULOSKELETAL PAIN [None]
